FAERS Safety Report 6463902-0 (Version None)
Quarter: 2009Q4

REPORT INFORMATION
  Report Type: 
  Country: None (occurrence: None)
  Receive Date: 20091130
  Receipt Date: 20091130
  Transmission Date: 20100525
  Serious: No
  Sender: FDA-Public Use
  Company Number: None

PATIENT
  Age: 73 Year
  Sex: Female
  Weight: 62.1428 kg

DRUGS (1)
  1. LYRICA [Suspect]
     Indication: KELOID SCAR
     Dosage: 75 MG

REACTIONS (6)
  - BLISTER [None]
  - DIZZINESS [None]
  - HAEMORRHAGE [None]
  - SCRATCH [None]
  - VERTIGO [None]
  - VISION BLURRED [None]
